FAERS Safety Report 17437878 (Version 1)
Quarter: 2020Q1

REPORT INFORMATION
  Report Type: Spontaneous
  Country: LU (occurrence: LU)
  Receive Date: 20200219
  Receipt Date: 20200219
  Transmission Date: 20200409
  Serious: Yes (Life-Threatening, Hospitalization, Other)
  Sender: FDA-Public Use
  Company Number: LU-BRISTOL-MYERS SQUIBB COMPANY-BMS-2020-014058

PATIENT
  Age: 43 Year
  Sex: Female
  Weight: 66 kg

DRUGS (3)
  1. OPDIVO [Suspect]
     Active Substance: NIVOLUMAB
     Indication: CERVIX CARCINOMA RECURRENT
     Route: 041
     Dates: start: 20200123, end: 20200123
  2. YERVOY [Suspect]
     Active Substance: IPILIMUMAB
     Indication: CERVIX CARCINOMA RECURRENT
     Route: 041
     Dates: start: 20200123, end: 20200123
  3. EUTHYROX [Concomitant]
     Active Substance: LEVOTHYROXINE SODIUM
     Indication: HYPOTHYROIDISM
     Route: 048

REACTIONS (4)
  - Muscular weakness [Not Recovered/Not Resolved]
  - Intentional product use issue [Unknown]
  - Myositis [Not Recovered/Not Resolved]
  - Myocarditis [Not Recovered/Not Resolved]

NARRATIVE: CASE EVENT DATE: 202002
